FAERS Safety Report 17979841 (Version 1)
Quarter: 2020Q3

REPORT INFORMATION
  Report Type: Spontaneous
  Country: IT (occurrence: IT)
  Receive Date: 20200703
  Receipt Date: 20200703
  Transmission Date: 20201103
  Serious: Yes (Hospitalization, Other)
  Sender: FDA-Public Use
  Company Number: IT-TEVA-2020-IT-1794634

PATIENT
  Age: 58 Year
  Sex: Female

DRUGS (3)
  1. SIRIO [Concomitant]
     Active Substance: CARBIDOPA\MELEVODOPA
  2. AZILECT [Suspect]
     Active Substance: RASAGILINE MESYLATE
     Dosage: 1 MILLIGRAM DAILY;
     Dates: start: 2014
  3. MADOPAR [Interacting]
     Active Substance: BENSERAZIDE HYDROCHLORIDE\LEVODOPA
     Dosage: 6 TABLETS DAILY
     Route: 065

REACTIONS (8)
  - Muscle spasms [Unknown]
  - Drug interaction [Unknown]
  - Back pain [Unknown]
  - Hallucination [Unknown]
  - Intestinal obstruction [Unknown]
  - Agitation [Unknown]
  - Tremor [Unknown]
  - Malaise [Unknown]
